FAERS Safety Report 13853781 (Version 4)
Quarter: 2017Q3

REPORT INFORMATION
  Report Type: Spontaneous
  Country: JP (occurrence: JP)
  Receive Date: 20170810
  Receipt Date: 20170818
  Transmission Date: 20171127
  Serious: Yes (Hospitalization)
  Sender: FDA-Public Use
  Company Number: JP-BRACCO-2017JP03496

PATIENT
  Sex: Female

DRUGS (1)
  1. PROHANCE [Suspect]
     Active Substance: GADOTERIDOL
     Indication: NUCLEAR MAGNETIC RESONANCE IMAGING
     Dosage: 16 ML, SINGLE
     Route: 042
     Dates: start: 20170728, end: 20170728

REACTIONS (2)
  - Shock [Recovering/Resolving]
  - Anxiety [None]

NARRATIVE: CASE EVENT DATE: 20170728
